FAERS Safety Report 5635902-1 (Version None)
Quarter: 2008Q1

REPORT INFORMATION
  Report Type: 
  Country: None (occurrence: None)
  Receive Date: 20080219
  Receipt Date: 20080212
  Transmission Date: 20080703
  Serious: Yes (Death, Hospitalization)
  Sender: FDA-Public Use
  Company Number: 144-C5013-07091211

PATIENT
  Age: 80 Year
  Sex: Female

DRUGS (1)
  1. CC-5013 (LENALIDOMIDE) (CAPSULES) [Suspect]
     Indication: 5Q-SYNDROME
     Dosage: 5-10 MG, DAILY, ORAL
     Route: 048
     Dates: start: 20070702, end: 20070730

REACTIONS (5)
  - AGRANULOCYTOSIS [None]
  - CANDIDIASIS [None]
  - DIVERTICULUM INTESTINAL [None]
  - NEUTROPENIC INFECTION [None]
  - THROMBOCYTOPENIA [None]
